FAERS Safety Report 14944085 (Version 1)
Quarter: 2018Q2

REPORT INFORMATION
  Report Type: Spontaneous
  Country: US (occurrence: US)
  Receive Date: 20180528
  Receipt Date: 20180528
  Transmission Date: 20180711
  Serious: Yes (Hospitalization, Other)
  Sender: FDA-Public Use
  Company Number: US-CPL-000460

PATIENT
  Age: 57 Year
  Sex: Male

DRUGS (2)
  1. HYDRALAZINE/HYDRALAZINE HYDROCHLORIDE [Suspect]
     Active Substance: HYDRALAZINE HYDROCHLORIDE
     Indication: HYPERTENSION
     Dosage: 50 MG BID (HIGHEST DOSE)
  2. AMLODIPINE [Concomitant]
     Active Substance: AMLODIPINE BESYLATE
     Indication: HYPERTENSION
     Dosage: 10 MG/DAY

REACTIONS (6)
  - Chronic kidney disease [Unknown]
  - Proteinuria [Unknown]
  - Glomerulonephritis rapidly progressive [Unknown]
  - Acute kidney injury [Recovering/Resolving]
  - Haematuria [Unknown]
  - Vasculitis [Unknown]
